FAERS Safety Report 4665016-9 (Version None)
Quarter: 2005Q2

REPORT INFORMATION
  Report Type: 
  Country: None (occurrence: None)
  Receive Date: 20050518
  Receipt Date: 20050518
  Transmission Date: 20051028
  Serious: Yes (Hospitalization)
  Sender: FDA-Public Use
  Company Number: None

PATIENT
  Age: 72 Year
  Sex: Male
  Weight: 93 kg

DRUGS (5)
  1. FLEET ACCU PREP [Suspect]
     Indication: COLONOSCOPY
     Dosage: 45 ML; Q12H; PO
     Route: 048
     Dates: start: 20050427, end: 20050428
  2. TEVETEN [Concomitant]
  3. MULTI-VITAMIN [Concomitant]
  4. VERSED [Concomitant]
  5. DEMEROL [Concomitant]

REACTIONS (3)
  - COLONIC POLYP [None]
  - POST PROCEDURAL HAEMORRHAGE [None]
  - RECTAL HAEMORRHAGE [None]
